FAERS Safety Report 9342850 (Version 1)
Quarter: 2013Q2

REPORT INFORMATION
  Report Type: Spontaneous
  Country: US (occurrence: US)
  Receive Date: 20130611
  Receipt Date: 20130611
  Transmission Date: 20140414
  Serious: Yes (Disabling, Other)
  Sender: FDA-Public Use
  Company Number: US-GLAXOSMITHKLINE-A1025983A

PATIENT
  Age: 51 Year
  Sex: Male

DRUGS (4)
  1. LAMICTAL [Suspect]
     Indication: AFFECTIVE DISORDER
     Dosage: 50MG PER DAY
     Route: 048
     Dates: start: 20130426
  2. TESTOSTERONE CREAM [Concomitant]
  3. DHEA [Concomitant]
  4. HUMAN GROWTH HORMONE [Concomitant]

REACTIONS (4)
  - Priapism [Not Recovered/Not Resolved]
  - Genital rash [Not Recovered/Not Resolved]
  - Fungal skin infection [Not Recovered/Not Resolved]
  - Genital infection fungal [Not Recovered/Not Resolved]
